FAERS Safety Report 7554736-4 (Version None)
Quarter: 2011Q2

REPORT INFORMATION
  Report Type: 
  Country: None (occurrence: None)
  Receive Date: 20110617
  Receipt Date: 20110608
  Transmission Date: 20111010
  Serious: Yes (Other)
  Sender: FDA-Public Use
  Company Number: PHHY2011US52222

PATIENT
  Age: 69 Year
  Sex: Male
  Weight: 105 kg

DRUGS (16)
  1. MIDAZOLAM HCL [Suspect]
     Dosage: 2 MG, (60 MINUTES AFTER THE PROCEDURE)
  2. FENTANYL-100 [Suspect]
     Dosage: 20 UG, UNK
  3. OXYGEN [Suspect]
     Dosage: 10 L, UNK
  4. VANCOMYCIN [Suspect]
     Dosage: 1 G, UNK
     Route: 042
  5. BACITRACIN [Suspect]
     Dosage: 50000 U, (145 MINUTES AFTER THE PROCEDURE)
  6. OXYGEN [Suspect]
     Dosage: 4 L, UNK
  7. FLUMAZENIL [Suspect]
  8. FENTANYL-100 [Suspect]
     Dosage: 40 UG, UNK
  9. PROPOFOL [Suspect]
     Dosage: 20 UG, UNK
  10. MIDAZOLAM HCL [Suspect]
     Dosage: 2 MG, (35 MINUTES AFTER THE PROCEDURE)
  11. FENTANYL-100 [Suspect]
     Dosage: 20 UG, UNK
     Route: 042
  12. PROPOFOL [Suspect]
     Dosage: 30 UG, UNK
     Route: 042
  13. MIDAZOLAM HCL [Suspect]
     Dosage: 1 MG, (5 MINUTES BEFORE PROCEDURE)
  14. MIDAZOLAM HCL [Suspect]
     Dosage: 2 MG, (10 MINUTES AFTER THE PROCEDURE)
  15. MIDAZOLAM HCL [Suspect]
     Dosage: 2 MG, (110 MINUTES AFTER THE PROCEDURE)
  16. OXYGEN [Suspect]
     Dosage: 15 L, UNK

REACTIONS (7)
  - PULSE ABSENT [None]
  - VENTRICULAR FIBRILLATION [None]
  - BLOOD PRESSURE DECREASED [None]
  - ANAPHYLACTIC REACTION [None]
  - HYPERHIDROSIS [None]
  - OXYGEN SATURATION DECREASED [None]
  - PALLOR [None]
